FAERS Safety Report 26207345 (Version 1)
Quarter: 2025Q4

REPORT INFORMATION
  Report Type: Spontaneous
  Country: US (occurrence: None)
  Receive Date: 20251224
  Receipt Date: 20251224
  Transmission Date: 20260118
  Serious: Yes (Other)
  Sender: FDA-CTU
  Company Number: None

PATIENT

DRUGS (2)
  1. FERRIC DERISOMALTOSE [Suspect]
     Active Substance: FERRIC DERISOMALTOSE
     Indication: Anaemia
     Dosage: 1000 MG WEEKLY INTRAVENOUS DRIP
     Route: 041
  2. SODIUM CHLORIDE [Suspect]
     Active Substance: SODIUM CHLORIDE

REACTIONS (10)
  - Flushing [None]
  - Chest discomfort [None]
  - Dyspnoea [None]
  - Back pain [None]
  - Abdominal pain [None]
  - Disorientation [None]
  - Infusion related reaction [None]
  - Blood pressure diastolic decreased [None]
  - Body temperature increased [None]
  - Oxygen saturation decreased [None]

NARRATIVE: CASE EVENT DATE: 20251224
